FAERS Safety Report 20508431 (Version 3)
Quarter: 2022Q1

REPORT INFORMATION
  Report Type: Report from Study
  Country: CN (occurrence: None)
  Receive Date: 20220223
  Receipt Date: 20220316
  Transmission Date: 20220424
  Serious: Yes (Hospitalization)
  Sender: FDA-Public Use
  Company Number: CN-ROCHE-3029124

PATIENT
  Age: 45 Year
  Sex: Male
  Weight: 59 kg

DRUGS (4)
  1. ATEZOLIZUMAB [Suspect]
     Active Substance: ATEZOLIZUMAB
     Indication: Small cell lung cancer extensive stage
     Dosage: ON 26/JAN/2022, RECEIVED MOST RECENT DOSE OF ATEZOLIUMAB.
     Route: 041
     Dates: start: 20211015, end: 20220224
  2. ATEZOLIZUMAB [Suspect]
     Active Substance: ATEZOLIZUMAB
     Route: 041
     Dates: start: 20220309
  3. CISPLATIN [Suspect]
     Active Substance: CISPLATIN
     Indication: Small cell lung cancer extensive stage
     Dosage: ON 17/DEC/2021, RECEIVED MOST RECENT DOSE OF CISPLATIN.
     Route: 042
     Dates: start: 20211015
  4. ETOPOSIDE [Suspect]
     Active Substance: ETOPOSIDE
     Indication: Small cell lung cancer extensive stage
     Dosage: ON 17/DEC/2021, RECEIVED MOST RECENT DOSE OF ETOPOSIDE.
     Route: 042
     Dates: start: 20211015

REACTIONS (1)
  - Hepatic function abnormal [Recovered/Resolved]

NARRATIVE: CASE EVENT DATE: 20220215
